FAERS Safety Report 17326590 (Version 1)
Quarter: 2020Q1

REPORT INFORMATION
  Report Type: Spontaneous
  Country: NL (occurrence: NL)
  Receive Date: 20200127
  Receipt Date: 20200127
  Transmission Date: 20200409
  Serious: Yes (Other)
  Sender: FDA-Public Use
  Company Number: NL-MYLANLABS-2020M1007979

PATIENT
  Age: 9 Year
  Sex: Male

DRUGS (3)
  1. RISPERIDONE. [Suspect]
     Active Substance: RISPERIDONE
     Indication: BEHAVIOUR DISORDER
     Dosage: UNK
     Route: 065
  2. ARIPIPRAZOLE. [Suspect]
     Active Substance: ARIPIPRAZOLE
     Indication: BEHAVIOUR DISORDER
     Dosage: UNK
     Route: 065
  3. VIGABATRIN. [Concomitant]
     Active Substance: VIGABATRIN
     Indication: EPILEPSY
     Dosage: UNK
     Route: 065

REACTIONS (5)
  - Hyperprolactinaemia [Unknown]
  - Behaviour disorder [Unknown]
  - Aggression [Unknown]
  - Mood altered [Unknown]
  - Drug ineffective [Unknown]
